FAERS Safety Report 13372168 (Version 2)
Quarter: 2017Q1

REPORT INFORMATION
  Report Type: Spontaneous
  Country: FR (occurrence: FR)
  Receive Date: 20170327
  Receipt Date: 20170328
  Transmission Date: 20170429
  Serious: Yes (Disabling, Other)
  Sender: FDA-Public Use
  Company Number: FR-009507513-1703FRA008955

PATIENT
  Age: 57 Year
  Sex: Female

DRUGS (8)
  1. NORSET [Suspect]
     Active Substance: MIRTAZAPINE
     Dosage: 15 MG (1 TABLET), EVERY 2 DAYS
     Route: 048
     Dates: start: 20170112, end: 2017
  2. TRANXENE T-TAB [Concomitant]
     Active Substance: CLORAZEPATE DIPOTASSIUM
     Indication: DEPRESSION
     Dosage: 3 CAPSULES
     Route: 048
     Dates: start: 2004
  3. TRANXENE T-TAB [Concomitant]
     Active Substance: CLORAZEPATE DIPOTASSIUM
     Dosage: 5 MG(1 CAPSULE), IN THE EVENING
     Route: 048
     Dates: end: 20170314
  4. MELATONIN [Concomitant]
     Active Substance: MELATONIN
     Dosage: UNK
     Dates: start: 20170314
  5. NORSET [Suspect]
     Active Substance: MIRTAZAPINE
     Dosage: 1/2 TABLET
     Route: 048
     Dates: end: 20170111
  6. NORSET [Suspect]
     Active Substance: MIRTAZAPINE
     Dosage: 15 MG (1 TABLET), EVERY 3 DAYS
     Route: 048
     Dates: start: 2017, end: 2017
  7. NORSET [Suspect]
     Active Substance: MIRTAZAPINE
     Indication: DEPRESSION
     Dosage: 3 TABLETS
     Route: 048
     Dates: start: 2004
  8. NORSET [Suspect]
     Active Substance: MIRTAZAPINE
     Dosage: 15 MG (1 TABLET), EVERY 4 DAYS
     Route: 048
     Dates: start: 2017, end: 20170314

REACTIONS (10)
  - Balance disorder [Unknown]
  - Weight increased [Recovering/Resolving]
  - Off label use [Unknown]
  - Dizziness [Unknown]
  - Fatigue [Not Recovered/Not Resolved]
  - Ocular hypertension [Unknown]
  - Vertigo [Not Recovered/Not Resolved]
  - Food aversion [Unknown]
  - Movement disorder [Unknown]
  - Weight decreased [Unknown]

NARRATIVE: CASE EVENT DATE: 2004
